FAERS Safety Report 5244932-3 (Version None)
Quarter: 2007Q1

REPORT INFORMATION
  Report Type: 
  Country: None (occurrence: None)
  Receive Date: 20070221
  Receipt Date: 20070221
  Transmission Date: 20070707
  Serious: Yes (Hospitalization)
  Sender: FDA-Public Use
  Company Number: None

PATIENT
  Age: 58 Year
  Sex: Male
  Weight: 97 kg

DRUGS (1)
  1. GLEEVEC [Suspect]
     Indication: WALDENSTROM'S MACROGLOBULINAEMIA
     Dosage: 600 MG PO
     Route: 048
     Dates: start: 20061224, end: 20070215

REACTIONS (2)
  - LEUKOPENIA [None]
  - RASH [None]
